FAERS Safety Report 6876018-6 (Version None)
Quarter: 2010Q3

REPORT INFORMATION
  Report Type: 
  Country: None (occurrence: None)
  Receive Date: 20100727
  Receipt Date: 20070712
  Transmission Date: 20110219
  Serious: Yes (Hospitalization)
  Sender: FDA-Public Use
  Company Number: US-PFIZER INC-2006112687

PATIENT
  Sex: Female
  Weight: 74.8 kg

DRUGS (20)
  1. CELEBREX [Suspect]
     Indication: ARTHRITIS
     Route: 048
     Dates: start: 20000401, end: 20020410
  2. VIOXX [Suspect]
     Indication: ARTHRITIS
     Route: 048
     Dates: start: 20020622, end: 20021028
  3. ASPIRIN [Concomitant]
  4. CAPTOPRIL [Concomitant]
  5. ENALAPRIL MALEATE [Concomitant]
  6. LIPITOR [Concomitant]
  7. METHOCARBAMOL [Concomitant]
  8. NIFEDIPINE [Concomitant]
  9. SPIRONOLACTONE [Concomitant]
  10. WELLBUTRIN [Concomitant]
  11. ZOLOFT [Concomitant]
  12. CHLORZOXAZONE [Concomitant]
  13. HYDROCODONE BITARTRATE [Concomitant]
  14. IBUPROFEN TABLETS [Concomitant]
  15. ISOSORBIDE DINITRATE [Concomitant]
  16. ISOSORBIDE MONONITRATE [Concomitant]
  17. ULTRAM [Concomitant]
  18. COZAAR [Concomitant]
  19. NEXIUM [Concomitant]
  20. METOPROLOL SUCCINATE [Concomitant]

REACTIONS (2)
  - CARDIAC FAILURE CONGESTIVE [None]
  - MYOCARDIAL INFARCTION [None]
